FAERS Safety Report 6037972-8 (Version None)
Quarter: 2009Q1

REPORT INFORMATION
  Report Type: 
  Country: None (occurrence: None)
  Receive Date: 20090115
  Receipt Date: 20090105
  Transmission Date: 20090719
  Serious: Yes (Death)
  Sender: FDA-Public Use
  Company Number: US-WYE-H07562409

PATIENT
  Age: 52 Year
  Sex: Female

DRUGS (6)
  1. PROMETHAZINE HCL [Suspect]
     Dosage: UNKNOWN
     Dates: end: 20070101
  2. METOCLOPRAMIDE [Suspect]
     Dosage: UNKNOWN
     Route: 048
     Dates: end: 20070101
  3. OXYCODONE [Suspect]
     Dosage: UNKNOWN
     Route: 048
     Dates: end: 20070101
  4. CLONIDINE [Suspect]
     Dosage: UNKNOWN
     Route: 048
     Dates: end: 20070101
  5. FENTANYL [Suspect]
     Dosage: UNKNOWN
     Route: 062
     Dates: end: 20070101
  6. METHADONE HCL [Suspect]
     Dosage: UNKNOWN
     Route: 048
     Dates: end: 20070101

REACTIONS (1)
  - DEATH [None]
